FAERS Safety Report 9639761 (Version 1)
Quarter: 2013Q4

REPORT INFORMATION
  Report Type: Spontaneous
  Country: US (occurrence: None)
  Receive Date: 20131021
  Receipt Date: 20131021
  Transmission Date: 20140711
  Serious: Yes (Disabling)
  Sender: FDA-Public Use
  Company Number: None

PATIENT
  Age: 58 Year
  Sex: Female
  Weight: 52.62 kg

DRUGS (2)
  1. GABAPENTIN [Suspect]
     Indication: PAIN IN EXTREMITY
     Dates: start: 20120825, end: 20121024
  2. GABAPENTIN [Suspect]
     Indication: NEURALGIA
     Dates: start: 20120825, end: 20121024

REACTIONS (7)
  - Arthralgia [None]
  - Arthralgia [None]
  - Therapy cessation [None]
  - Pain in extremity [None]
  - Disease recurrence [None]
  - Gait disturbance [None]
  - Activities of daily living impaired [None]
